FAERS Safety Report 4275842-6 (Version None)
Quarter: 2004Q1

REPORT INFORMATION
  Report Type: 
  Country: None (occurrence: None)
  Receive Date: 20040121
  Receipt Date: 20030109
  Transmission Date: 20041129
  Serious: No
  Sender: FDA-Public Use
  Company Number: US-GLAXOSMITHKLINE-A0391728A

PATIENT
  Age: 27 Year
  Sex: Male

DRUGS (2)
  1. VALTREX [Suspect]
     Dosage: 500MG TWICE PER DAY
     Route: 048
     Dates: start: 20030107, end: 20030108
  2. NO CONCURRENT MEDICATIONS [Concomitant]

REACTIONS (4)
  - EXCITABILITY [None]
  - HYPERTENSION [None]
  - INSOMNIA [None]
  - TACHYCARDIA [None]
